FAERS Safety Report 7521492-5 (Version None)
Quarter: 2011Q2

REPORT INFORMATION
  Report Type: 
  Country: None (occurrence: None)
  Receive Date: 20110603
  Receipt Date: 20110524
  Transmission Date: 20111010
  Serious: Yes (Other)
  Sender: FDA-Public Use
  Company Number: CA-JNJFOC-20110510374

PATIENT
  Age: 15 Year
  Sex: Male

DRUGS (1)
  1. CONCERTA [Suspect]
     Indication: TOURETTE'S DISORDER
     Route: 048
     Dates: start: 20110401

REACTIONS (2)
  - TOURETTE'S DISORDER [None]
  - CONTRAINDICATION TO MEDICAL TREATMENT [None]
